FAERS Safety Report 5307427-4 (Version None)
Quarter: 2007Q2

REPORT INFORMATION
  Report Type: 
  Country: None (occurrence: None)
  Receive Date: 20070425
  Receipt Date: 20070419
  Transmission Date: 20071010
  Serious: Yes (Other)
  Sender: FDA-Public Use
  Company Number: DE-SHR-DE-2007-005842

PATIENT
  Sex: Female

DRUGS (1)
  1. MIRENA [Suspect]
     Indication: CONTRACEPTION
     Route: 015
     Dates: start: 20060101, end: 20070214

REACTIONS (6)
  - DEPRESSION [None]
  - DIZZINESS [None]
  - HEADACHE [None]
  - LOSS OF LIBIDO [None]
  - METRORRHAGIA [None]
  - PSYCHOTIC DISORDER [None]
